FAERS Safety Report 9601804 (Version 1)
Quarter: 2013Q4

REPORT INFORMATION
  Report Type: Spontaneous
  Country: US (occurrence: None)
  Receive Date: 20131004
  Receipt Date: 20131004
  Transmission Date: 20140711
  Serious: Yes (Life-Threatening, Other)
  Sender: FDA-Public Use
  Company Number: None

PATIENT
  Age: 66 Year
  Sex: Female

DRUGS (4)
  1. SULFAZINE [Suspect]
     Indication: IRRITABLE BOWEL SYNDROME
     Dosage: 1, 2, MOUTH
     Route: 048
     Dates: start: 20130913, end: 20130924
  2. ESTRANE [Concomitant]
  3. GERITOL [Concomitant]
  4. VIT E [Concomitant]

REACTIONS (5)
  - Depression [None]
  - Hypoglycaemia [None]
  - Abdominal distension [None]
  - Myalgia [None]
  - Muscle tightness [None]
